FAERS Safety Report 4494309-3 (Version None)
Quarter: 2004Q4

REPORT INFORMATION
  Report Type: 
  Country: None (occurrence: None)
  Receive Date: 20041105
  Receipt Date: 20040920
  Transmission Date: 20050328
  Serious: Yes (Other)
  Sender: FDA-Public Use
  Company Number: AU-GLAXOSMITHKLINE-B0346394A

PATIENT
  Age: 47 Year
  Sex: Female

DRUGS (1)
  1. ZYBAN [Suspect]
     Dosage: 1TAB VARIABLE DOSE
     Route: 048
     Dates: start: 20040901, end: 20040920

REACTIONS (8)
  - ABNORMAL DREAMS [None]
  - CONSTIPATION [None]
  - DIARRHOEA [None]
  - DIZZINESS [None]
  - DYSPHORIA [None]
  - FEELING ABNORMAL [None]
  - PALPITATIONS [None]
  - SPEECH DISORDER [None]
